FAERS Safety Report 5734119-X (Version None)
Quarter: 2008Q2

REPORT INFORMATION
  Report Type: 
  Country: None (occurrence: None)
  Receive Date: 20080509
  Receipt Date: 20080502
  Transmission Date: 20081010
  Serious: Yes (Disabling)
  Sender: FDA-Public Use
  Company Number: GB-PFIZER INC-2008038943

PATIENT
  Age: 56 Year
  Sex: Female
  Weight: 55 kg

DRUGS (4)
  1. CHANTIX [Suspect]
     Indication: SMOKING CESSATION THERAPY
     Route: 048
     Dates: start: 20071102, end: 20080215
  2. DIHYDROCODEINE [Concomitant]
     Dosage: DAILY DOSE:150MG
     Route: 048
  3. DOXYCYCLINE [Concomitant]
     Dosage: DAILY DOSE:100MG
     Route: 048
  4. FEMOSTON CONTI [Concomitant]
     Route: 048

REACTIONS (2)
  - ARTHRALGIA [None]
  - JOINT SWELLING [None]
